FAERS Safety Report 7970459-1 (Version None)
Quarter: 2011Q4

REPORT INFORMATION
  Report Type: 
  Country: None (occurrence: None)
  Receive Date: 20111212
  Receipt Date: 20111206
  Transmission Date: 20120403
  Serious: Yes (Death)
  Sender: FDA-Public Use
  Company Number: PHHY2011MX55876

PATIENT
  Sex: Female

DRUGS (1)
  1. EXELON [Suspect]
     Indication: DEMENTIA ALZHEIMER'S TYPE
     Dosage: 1 PATCH (4.6 MG/5CM2 ) PER DAY
     Route: 062

REACTIONS (6)
  - HYPOKINESIA [None]
  - MEMORY IMPAIRMENT [None]
  - DEATH [None]
  - WOUND [None]
  - SPEECH DISORDER [None]
  - SPINAL COLUMN INJURY [None]
